FAERS Safety Report 17836351 (Version 1)
Quarter: 2020Q2

REPORT INFORMATION
  Report Type: Report from Study
  Country: MY (occurrence: MY)
  Receive Date: 20200529
  Receipt Date: 20200529
  Transmission Date: 20200714
  Serious: Yes (Hospitalization, Other)
  Sender: FDA-Public Use
  Company Number: MY-TOLMAR, INC.-19MY000918

PATIENT
  Age: 83 Year
  Sex: Male

DRUGS (11)
  1. CELECOXIB. [Concomitant]
     Active Substance: CELECOXIB
     Indication: RECTAL SPASM
     Dosage: 400 MG
     Route: 048
     Dates: start: 20190104, end: 20190111
  2. CEFUROXIME. [Concomitant]
     Active Substance: CEFUROXIME
     Dosage: 500 MG
     Route: 048
     Dates: start: 20190409, end: 20190416
  3. TRAMADOL. [Concomitant]
     Active Substance: TRAMADOL
     Indication: FEMUR FRACTURE
     Dosage: 50 MG
     Route: 030
     Dates: start: 20190408, end: 20190409
  4. FERROUS FUMARATE [Concomitant]
     Active Substance: FERROUS FUMARATE
     Indication: ANAEMIA
     Dosage: 200 MG
     Route: 048
     Dates: start: 20190409, end: 20190604
  5. PARACETAMOL [Concomitant]
     Active Substance: ACETAMINOPHEN
     Indication: FEMUR FRACTURE
     Dosage: 4000 MG
     Route: 048
     Dates: start: 20190408, end: 20190409
  6. CALCIUM CARBONATE;CHOLECALCIFEROL;SODIUM [Concomitant]
     Indication: FEMUR FRACTURE
     Dosage: 4 MG
     Route: 048
     Dates: start: 20190409, end: 20190604
  7. ELIGARD [Suspect]
     Active Substance: LEUPROLIDE ACETATE
     Indication: HORMONE-DEPENDENT PROSTATE CANCER
     Dosage: 22.5 MG Q 3 MONTHS
     Route: 058
     Dates: start: 20180119, end: 20190419
  8. LACTULOSE. [Concomitant]
     Active Substance: LACTULOSE
     Indication: CONSTIPATION
     Dosage: 15 MILLILITER
     Route: 048
     Dates: start: 20190409, end: 20190604
  9. CEFUROXIME. [Concomitant]
     Active Substance: CEFUROXIME
     Indication: INFECTION
     Dosage: 4500 MICROGRAM
     Route: 042
     Dates: start: 20190408, end: 20190409
  10. TRIPTORELIN [Concomitant]
     Active Substance: TRIPTORELIN
     Indication: PROSTATE CANCER
     Dosage: 11.25 MG
     Route: 058
     Dates: start: 20190716
  11. TRAMADOL. [Concomitant]
     Active Substance: TRAMADOL
     Dosage: 150 MG
     Route: 048
     Dates: start: 20190409, end: 20190416

REACTIONS (1)
  - Spinal compression fracture [Recovering/Resolving]

NARRATIVE: CASE EVENT DATE: 20181115
